FAERS Safety Report 21257609 (Version 1)
Quarter: 2022Q3

REPORT INFORMATION
  Report Type: Spontaneous
  Country: US (occurrence: None)
  Receive Date: 20220826
  Receipt Date: 20220826
  Transmission Date: 20221027
  Serious: No
  Sender: FDA-Public Use
  Company Number: US-ARIS GLOBAL-ORE202204-000014

PATIENT
  Age: 44 Year
  Sex: Male
  Weight: 40.36 kg

DRUGS (14)
  1. ZUBSOLV [Suspect]
     Active Substance: BUPRENORPHINE HYDROCHLORIDE\NALOXONE HYDROCHLORIDE
     Indication: Drug withdrawal syndrome
     Dosage: ONE TABLET, THREE TIMES A DAY
     Dates: start: 202204
  2. ZUBSOLV [Suspect]
     Active Substance: BUPRENORPHINE HYDROCHLORIDE\NALOXONE HYDROCHLORIDE
     Indication: Pain management
  3. ADVAIR DISKUS [Concomitant]
     Active Substance: FLUTICASONE PROPIONATE\SALMETEROL XINAFOATE
     Indication: Asthma
     Dosage: 500/50, ONE PUFF, BID
  4. CRESTOR [Concomitant]
     Active Substance: ROSUVASTATIN CALCIUM
     Indication: Blood cholesterol increased
     Dosage: 40 MG, ONE TABLET, H.S.
  5. PROTONIX [Concomitant]
     Active Substance: PANTOPRAZOLE SODIUM
     Indication: Gastrooesophageal reflux disease
     Dosage: 40 MG, ONE TABLET, BID
  6. COREG [Concomitant]
     Active Substance: CARVEDILOL
     Indication: Atrial fibrillation
     Dosage: 25 MG, ONE TABLET, BID
  7. CLONIDINE [Concomitant]
     Active Substance: CLONIDINE
     Indication: Hypertension
     Dosage: 0.1 MG, 1 TABLET, BID
  8. VITAMIN D3 [Concomitant]
     Active Substance: CHOLECALCIFEROL
     Indication: Vitamin supplementation
     Dosage: 3200IU, ONE TABLET, BID
  9. ASPIRIN [Concomitant]
     Active Substance: ASPIRIN
     Indication: Atrial fibrillation
     Dosage: 81 MG, ONE TABLET, BID
  10. NITROGLYCERIN [Concomitant]
     Active Substance: NITROGLYCERIN
     Indication: Chest pain
     Dosage: 0.4 MG, ONE TABLET, Q4 HOURS, PRN
  11. FLOMAX [Concomitant]
     Active Substance: TAMSULOSIN HYDROCHLORIDE
     Indication: Urinary retention
     Dosage: 0.4 MG, H.S.
  12. MELATONIN [Concomitant]
     Active Substance: MELATONIN
     Indication: Sleep disorder
     Dosage: 10 MG, H.S.
  13. ATROVENT [Concomitant]
     Active Substance: IPRATROPIUM BROMIDE
     Indication: Asthma
     Dosage: 17 MG
  14. ATROVENT [Concomitant]
     Active Substance: IPRATROPIUM BROMIDE
     Indication: Asthma
     Dosage: 0.4 PERCENT, EVERY 4 HOURS, PRN

REACTIONS (3)
  - Dyspepsia [Not Recovered/Not Resolved]
  - Product use in unapproved indication [Unknown]
  - Product administration error [Unknown]

NARRATIVE: CASE EVENT DATE: 20220401
